FAERS Safety Report 14499022 (Version 1)
Quarter: 2018Q1

REPORT INFORMATION
  Report Type: Spontaneous
  Country: CA (occurrence: CA)
  Receive Date: 20180207
  Receipt Date: 20180207
  Transmission Date: 20180509
  Serious: Yes (Other)
  Sender: FDA-Public Use
  Company Number: CA-PFIZER INC-2018047473

PATIENT
  Age: 69 Year
  Sex: Female
  Weight: 107.94 kg

DRUGS (6)
  1. PRISTIQ EXTENDED-RELEASE [Suspect]
     Active Substance: DESVENLAFAXINE SUCCINATE
     Indication: DYSPEPSIA
     Dosage: 50 MG, 1X/DAY
  2. NOVO-NAPROX /00256201/ [Suspect]
     Active Substance: NAPROXEN
     Dosage: AS NEEDED
     Route: 048
  3. ZOPICLONE [Concomitant]
     Active Substance: ZOPICLONE
     Dosage: UNK
     Route: 048
  4. CYCLOBENZAPRINE. [Concomitant]
     Active Substance: CYCLOBENZAPRINE
     Route: 048
  5. MICARDIS PLUS [Concomitant]
     Active Substance: HYDROCHLOROTHIAZIDE\TELMISARTAN
     Route: 048
  6. NOVO-SEMIDE [Concomitant]
     Dosage: 80 MG, UNK
     Route: 048

REACTIONS (5)
  - Nervousness [Not Recovered/Not Resolved]
  - Product quality issue [Not Recovered/Not Resolved]
  - Medication residue present [Not Recovered/Not Resolved]
  - Drug ineffective for unapproved indication [Unknown]
  - Vomiting [Not Recovered/Not Resolved]
